FAERS Safety Report 15127711 (Version 1)
Quarter: 2018Q3

REPORT INFORMATION
  Report Type: Report from Study
  Country: BR (occurrence: BR)
  Receive Date: 20180710
  Receipt Date: 20180710
  Transmission Date: 20181010
  Serious: Yes (Life-Threatening, Other)
  Sender: FDA-Public Use
  Company Number: BR-BAYER-2018-099436

PATIENT
  Age: 56 Year
  Sex: Female

DRUGS (6)
  1. NEXAVAR [Suspect]
     Active Substance: SORAFENIB
     Indication: HEPATOCELLULAR CARCINOMA
     Dosage: 800 MG, QD
     Route: 048
     Dates: start: 20180514, end: 201806
  2. NEXAVAR [Suspect]
     Active Substance: SORAFENIB
     Indication: METASTASES TO LUNG
  3. HYDROCHLOROTHIAZID [Concomitant]
     Active Substance: HYDROCHLOROTHIAZIDE
     Indication: HYPERTENSION
     Dosage: UNK UNK, QD
     Route: 048
  4. METFORMIN [Concomitant]
     Active Substance: METFORMIN HYDROCHLORIDE
     Indication: DIABETES MELLITUS
     Dosage: 150 MG, QD
     Route: 048
     Dates: start: 2014
  5. OMEPRAZOL [Concomitant]
     Active Substance: OMEPRAZOLE
     Indication: GASTRITIS
     Dosage: 20 MG, QD
     Route: 048
  6. LOSARTAN. [Concomitant]
     Active Substance: LOSARTAN
     Indication: HYPERTENSION
     Dosage: 50 MG, BID
     Route: 048

REACTIONS (24)
  - Alopecia [None]
  - Tremor [None]
  - Abdominal distension [None]
  - Tachycardia [None]
  - Immunodeficiency [Not Recovered/Not Resolved]
  - Pain in extremity [Not Recovered/Not Resolved]
  - Pyrexia [None]
  - Burning sensation [Recovering/Resolving]
  - Head discomfort [Not Recovered/Not Resolved]
  - Pain [None]
  - Erythema [None]
  - Shock [Recovered/Resolved]
  - Hypersensitivity [Recovering/Resolving]
  - Paraesthesia [Not Recovered/Not Resolved]
  - Generalised erythema [Recovering/Resolving]
  - Rash macular [Recovering/Resolving]
  - Blood pressure increased [None]
  - Gait inability [None]
  - Rhinitis [Not Recovered/Not Resolved]
  - Skin reaction [Recovered/Resolved]
  - Erythema [Recovering/Resolving]
  - Sleep disorder [Not Recovered/Not Resolved]
  - Swelling [None]
  - Rash erythematous [None]

NARRATIVE: CASE EVENT DATE: 20180517
